FAERS Safety Report 7936910-8 (Version None)
Quarter: 2011Q4

REPORT INFORMATION
  Report Type: 
  Country: None (occurrence: None)
  Receive Date: 20111123
  Receipt Date: 20111123
  Transmission Date: 20120403
  Serious: Yes (Hospitalization)
  Sender: FDA-Public Use
  Company Number: None

PATIENT
  Age: 88 Year
  Sex: Female
  Weight: 61.3 kg

DRUGS (9)
  1. LASIX [Concomitant]
  2. POTASSIUM CHLORIDE [Concomitant]
  3. COUMADIN [Suspect]
     Indication: ATRIAL FIBRILLATION
     Dosage: 2.5 MG
     Route: 048
     Dates: start: 20071102, end: 20111004
  4. GLIPIZIDE [Concomitant]
  5. LOVASTATIN [Concomitant]
  6. MEGACE [Concomitant]
  7. METOPROLOL TARTRATE [Concomitant]
  8. FERROUS SULFATE TAB [Concomitant]
  9. METHIMAZOLE [Concomitant]

REACTIONS (2)
  - HAEMOGLOBIN DECREASED [None]
  - RECTAL HAEMORRHAGE [None]
